FAERS Safety Report 16878862 (Version 11)
Quarter: 2020Q1

REPORT INFORMATION
  Report Type: Report from Study
  Country: US (occurrence: US)
  Receive Date: 20191002
  Receipt Date: 20200311
  Transmission Date: 20200409
  Serious: Yes (Hospitalization, Other)
  Sender: FDA-Public Use
  Company Number: US-ACTELION-A-US2019-196223

PATIENT
  Sex: Female
  Weight: 96.15 kg

DRUGS (6)
  1. VELETRI [Suspect]
     Active Substance: EPOPROSTENOL
     Dosage: 7 NG/KG, PER MIN
     Route: 042
  2. LETAIRIS [Suspect]
     Active Substance: AMBRISENTAN
     Indication: PRODUCT USED FOR UNKNOWN INDICATION
     Dosage: 10 MG, QD
     Route: 048
     Dates: start: 20171127
  3. ADCIRCA [Concomitant]
     Active Substance: TADALAFIL
  4. VELETRI [Suspect]
     Active Substance: EPOPROSTENOL
     Dosage: 5 NG/KG, PER MIN
     Route: 042
  5. VELETRI [Suspect]
     Active Substance: EPOPROSTENOL
     Dosage: 4 NG/KG, PER MIN
     Route: 042
  6. VELETRI [Suspect]
     Active Substance: EPOPROSTENOL
     Indication: PULMONARY HYPERTENSION
     Dosage: 20 NG, PER MIN
     Route: 042

REACTIONS (32)
  - Hepatic encephalopathy [Not Recovered/Not Resolved]
  - Nausea [Unknown]
  - Thrombocytopenia [Unknown]
  - Catheter site bruise [Unknown]
  - Abdominal pain upper [Not Recovered/Not Resolved]
  - Diarrhoea [Unknown]
  - Catheter site erythema [Unknown]
  - Catheter site pain [Unknown]
  - Mental status changes [Not Recovered/Not Resolved]
  - Fluid retention [Unknown]
  - Pain in jaw [Recovered/Resolved]
  - Decreased appetite [Unknown]
  - Hot flush [Recovered/Resolved]
  - Dyspnoea [Unknown]
  - Tremor [Unknown]
  - Hepatic cirrhosis [Unknown]
  - Catheter site pruritus [Unknown]
  - Catheter site induration [Recovered/Resolved]
  - Lethargy [Not Recovered/Not Resolved]
  - Fatigue [Unknown]
  - Flushing [Unknown]
  - Confusional state [Not Recovered/Not Resolved]
  - Headache [Unknown]
  - Urinary tract infection [Unknown]
  - Dizziness [Unknown]
  - Osteodystrophy [Unknown]
  - Catheter placement [Unknown]
  - Weight decreased [Unknown]
  - Cough [Unknown]
  - Breath sounds abnormal [Recovering/Resolving]
  - Vomiting [Not Recovered/Not Resolved]
  - Splenomegaly [Unknown]
